FAERS Safety Report 5999129-6 (Version None)
Quarter: 2008Q4

REPORT INFORMATION
  Report Type: 
  Country: None (occurrence: None)
  Receive Date: 20081215
  Receipt Date: 20081203
  Transmission Date: 20090506
  Serious: Yes (Hospitalization)
  Sender: FDA-Public Use
  Company Number: US-PFIZER INC-2008151508

PATIENT
  Sex: Female
  Weight: 55.782 kg

DRUGS (6)
  1. HALCION [Suspect]
     Indication: SLEEP DISORDER
     Dosage: 0.125 MG, UNK
  2. TRIAZOLAM [Suspect]
     Indication: SLEEP DISORDER
     Dosage: 0.125 MG, UNK
  3. PRILOSEC [Concomitant]
     Dosage: UNK
  4. LIPITOR [Concomitant]
     Dosage: UNK
  5. CALCIUM [Concomitant]
     Dosage: UNK
  6. FISH OIL [Concomitant]
     Dosage: UNK

REACTIONS (4)
  - ABDOMINAL DISCOMFORT [None]
  - ARTHRITIS [None]
  - DEPENDENCE [None]
  - SPINAL COLUMN STENOSIS [None]
